FAERS Safety Report 7136150-9 (Version None)
Quarter: 2010Q4

REPORT INFORMATION
  Report Type: 
  Country: None (occurrence: None)
  Receive Date: 20101205
  Receipt Date: 20101129
  Transmission Date: 20110411
  Serious: Yes (Other)
  Sender: FDA-Public Use
  Company Number: FR-BRISTOL-MYERS SQUIBB COMPANY-15354988

PATIENT
  Age: 37 Year
  Sex: Male
  Weight: 78 kg

DRUGS (4)
  1. ABILIFY [Suspect]
     Indication: SCHIZOPHRENIA, PARANOID TYPE
     Dosage: STARTED AT 30MG INCREASED TO 45MG FROM 12OCT10  DECREASED TO 15MG ON 5NOV10
     Route: 048
  2. XANAX [Suspect]
     Indication: ANXIETY
     Dosage: TABLETS
     Route: 048
     Dates: start: 20100830, end: 20101117
  3. PROZAC [Concomitant]
     Route: 048
     Dates: start: 20100703
  4. NOCTRAN [Concomitant]
     Indication: INSOMNIA
     Route: 048
     Dates: start: 20100511

REACTIONS (2)
  - COGNITIVE DISORDER [None]
  - OVERDOSE [None]
